FAERS Safety Report 16115664 (Version 3)
Quarter: 2019Q1

REPORT INFORMATION
  Report Type: Report from Study
  Country: None (occurrence: AR)
  Receive Date: 20190326
  Receipt Date: 20190328
  Transmission Date: 20190418
  Serious: Yes (Hospitalization, Other)
  Sender: FDA-Public Use
  Company Number: AR-ABBVIE-19K-007-2717568-00

PATIENT
  Age: 77 Year
  Sex: Male

DRUGS (1)
  1. HUMIRA [Suspect]
     Active Substance: ADALIMUMAB
     Indication: PSORIATIC ARTHROPATHY
     Route: 058
     Dates: start: 20170623

REACTIONS (7)
  - Bacterial infection [Not Recovered/Not Resolved]
  - Hypophagia [Unknown]
  - Sepsis [Not Recovered/Not Resolved]
  - Food aversion [Unknown]
  - Nosocomial infection [Not Recovered/Not Resolved]
  - Hepatic infection [Not Recovered/Not Resolved]
  - Prostatomegaly [Not Recovered/Not Resolved]

NARRATIVE: CASE EVENT DATE: 2018
